FAERS Safety Report 9676017 (Version 2)
Quarter: 2013Q4

REPORT INFORMATION
  Report Type: Report from Study
  Country: US (occurrence: US)
  Receive Date: 20131107
  Receipt Date: 20131205
  Transmission Date: 20140711
  Serious: Yes (Death)
  Sender: FDA-Public Use
  Company Number: PHEH2013US023114

PATIENT
  Age: 15 Year
  Sex: Male

DRUGS (1)
  1. TOBI [Suspect]
     Indication: BRONCHITIS CHRONIC
     Dosage: 300 MG/ 5 ML, BID 30 DAY ON 30 DAY OFF
     Dates: start: 20130320, end: 20130910

REACTIONS (9)
  - Cardiac arrest [Fatal]
  - Shock [Fatal]
  - Respiratory failure [Fatal]
  - Sepsis [Fatal]
  - Pneumonia [Fatal]
  - Immunodeficiency [Fatal]
  - Ataxia telangiectasia [Fatal]
  - Malnutrition [Fatal]
  - Respiratory distress [Fatal]
